FAERS Safety Report 20772991 (Version 2)
Quarter: 2022Q2

REPORT INFORMATION
  Report Type: Spontaneous
  Country: RO (occurrence: RO)
  Receive Date: 20220502
  Receipt Date: 20220510
  Transmission Date: 20220721
  Serious: Yes (Hospitalization)
  Sender: FDA-Public Use
  Company Number: RO-PFIZER INC-202200592560

PATIENT
  Age: 61 Year
  Sex: Male

DRUGS (20)
  1. ANIDULAFUNGIN [Suspect]
     Active Substance: ANIDULAFUNGIN
     Indication: Candida infection
     Dosage: UNK
     Dates: start: 202104, end: 2021
  2. AVIBACTAM SODIUM\CEFTAZIDIME [Suspect]
     Active Substance: AVIBACTAM SODIUM\CEFTAZIDIME
     Indication: Bacterial infection
     Dosage: UNK
     Dates: start: 202105, end: 2021
  3. LINEZOLID [Suspect]
     Active Substance: LINEZOLID
     Indication: Evidence based treatment
     Dosage: UNK
     Dates: start: 20210419, end: 20210504
  4. VORICONAZOLE [Suspect]
     Active Substance: VORICONAZOLE
     Indication: Bronchopulmonary aspergillosis
     Dosage: UNK
     Route: 048
     Dates: start: 20210419, end: 20210602
  5. VORICONAZOLE [Suspect]
     Active Substance: VORICONAZOLE
     Dosage: UNK
     Dates: start: 20210602, end: 20210616
  6. VORICONAZOLE [Suspect]
     Active Substance: VORICONAZOLE
     Dosage: UNK
     Dates: start: 20210616, end: 20210624
  7. MEROPENEM [Suspect]
     Active Substance: MEROPENEM
     Indication: Evidence based treatment
     Dosage: UNK
     Dates: start: 20210419, end: 202105
  8. COLISTIN [Suspect]
     Active Substance: COLISTIN
     Indication: Evidence based treatment
     Dosage: UNK
     Dates: start: 20210506, end: 20210602
  9. COLISTIN [Suspect]
     Active Substance: COLISTIN
     Dosage: UNK
     Dates: start: 20210602, end: 20210616
  10. COLISTIN [Suspect]
     Active Substance: COLISTIN
     Dosage: UNK
     Dates: start: 20210616, end: 20210624
  11. AMPICILLIN [Suspect]
     Active Substance: AMPICILLIN
     Indication: Bacterial infection
     Dosage: UNK
     Dates: start: 202105, end: 20210602
  12. AMPICILLIN [Suspect]
     Active Substance: AMPICILLIN
     Dosage: UNK
     Dates: start: 20210602, end: 20210616
  13. AMPICILLIN [Suspect]
     Active Substance: AMPICILLIN
     Dosage: UNK
     Dates: start: 20210616, end: 20210624
  14. VANCOMYCIN [Suspect]
     Active Substance: VANCOMYCIN
     Indication: Staphylococcal infection
     Dosage: UNK
     Dates: start: 202105, end: 20210602
  15. VANCOMYCIN [Suspect]
     Active Substance: VANCOMYCIN
     Dosage: UNK
     Dates: start: 20210602, end: 20210616
  16. VANCOMYCIN [Suspect]
     Active Substance: VANCOMYCIN
     Dosage: UNK
     Dates: start: 20210616, end: 20210624
  17. DEXAMETHASONE [Concomitant]
     Active Substance: DEXAMETHASONE
     Indication: Inflammation
     Dosage: 24 MG, DAILY (TAPERED UNTIL CESSATION 14 DAYS LATER)
  18. DEXAMETHASONE [Concomitant]
     Active Substance: DEXAMETHASONE
     Dosage: 8 MG, DAILY (TAPERED UNTIL CESSATION 14 DAYS LATER)
  19. OXYGEN [Concomitant]
     Active Substance: OXYGEN
     Dosage: UNK (PROVIDED, WITH DECREASING VOLUMES UNTIL REMOVAL SIX DAYS LATER)
  20. OXYGEN [Concomitant]
     Active Substance: OXYGEN
     Dosage: UNK (LOW VOLUMES)

REACTIONS (3)
  - Anaemia [Recovered/Resolved]
  - Drug ineffective [Unknown]
  - Pulmonary mucormycosis [Recovered/Resolved]

NARRATIVE: CASE EVENT DATE: 20210401
